FAERS Safety Report 7568838-X (Version None)
Quarter: 2011Q2

REPORT INFORMATION
  Report Type: 
  Country: None (occurrence: None)
  Receive Date: 20110623
  Receipt Date: 20110622
  Transmission Date: 20111010
  Serious: Yes (Hospitalization)
  Sender: FDA-Public Use
  Company Number: IT-TEVA-287521ISR

PATIENT
  Sex: Male

DRUGS (1)
  1. DICLOFENAC SODIUM [Suspect]

REACTIONS (4)
  - MELAENA [None]
  - HAEMATEMESIS [None]
  - SHOCK HAEMORRHAGIC [None]
  - DUODENAL ULCER [None]
